FAERS Safety Report 4989948-7 (Version None)
Quarter: 2006Q2

REPORT INFORMATION
  Report Type: 
  Country: None (occurrence: None)
  Receive Date: 20060503
  Receipt Date: 20050216
  Transmission Date: 20061013
  Serious: Yes (Hospitalization, Other)
  Sender: FDA-Public Use
  Company Number: GB-AMGEN-UK114471

PATIENT
  Age: 58 Year
  Sex: Male

DRUGS (6)
  1. ARANESP [Suspect]
     Indication: RENAL FAILURE CHRONIC
     Route: 058
     Dates: start: 20030320, end: 20050307
  2. ANTIHYPERTENSIVE MEDICATION NOS [Concomitant]
     Route: 065
     Dates: end: 20030101
  3. KETOVITE [Concomitant]
     Route: 065
  4. WARFARIN SODIUM [Concomitant]
     Dates: end: 20040901
  5. IRON [Concomitant]
     Route: 042
  6. VENOFER [Concomitant]

REACTIONS (6)
  - ANTI-ERYTHROPOIETIN ANTIBODY POSITIVE [None]
  - APLASIA PURE RED CELL [None]
  - GASTRIC ULCER HAEMORRHAGE [None]
  - LABORATORY TEST INTERFERENCE [None]
  - RECTAL POLYP [None]
  - URINARY TRACT INFECTION [None]
